FAERS Safety Report 9947012 (Version 1)
Quarter: 2014Q1

REPORT INFORMATION
  Report Type: Report from Study
  Country: US (occurrence: US)
  Receive Date: 20140303
  Receipt Date: 20140303
  Transmission Date: 20141002
  Serious: Yes (Other)
  Sender: FDA-Public Use
  Company Number: US-ABBVIE-13P-163-1064587-00

PATIENT
  Age: 56 Year
  Sex: Female

DRUGS (7)
  1. HUMIRA [Suspect]
     Indication: PSORIASIS
     Dates: start: 1999
  2. HUMIRA [Suspect]
     Dates: start: 201211, end: 201301
  3. HUMIRA [Suspect]
     Dates: start: 20130225
  4. VITAMINS NOS [Concomitant]
     Indication: PRODUCT USED FOR UNKNOWN INDICATION
  5. SYNTHROID [Concomitant]
     Indication: HYPOTHYROIDISM
     Dosage: IN THE MORNING
  6. LOMOTIL [Concomitant]
     Indication: DIARRHOEA
  7. RESTORIL [Concomitant]
     Indication: INSOMNIA

REACTIONS (3)
  - Hernia repair [Unknown]
  - Injection site pain [Unknown]
  - Psoriasis [Not Recovered/Not Resolved]
